FAERS Safety Report 17254862 (Version 2)
Quarter: 2020Q1

REPORT INFORMATION
  Report Type: Spontaneous
  Country: US (occurrence: SA)
  Receive Date: 20200109
  Receipt Date: 20200114
  Transmission Date: 20200409
  Serious: Yes (Death)
  Sender: FDA-Public Use
  Company Number: SA-BEH-2020111611

PATIENT
  Age: 3 Year
  Sex: Male

DRUGS (6)
  1. HUMAN IMMUNOGLOBULIN (NC) [Suspect]
     Active Substance: HUMAN IMMUNOGLOBULIN G
     Dosage: 1 UNK
     Route: 042
  2. BIOTIN [Suspect]
     Active Substance: BIOTIN
     Indication: BICKERSTAFF^S ENCEPHALITIS
     Dosage: 5 MILLIGRAM/KILOGRAM, BID
     Route: 065
  3. THIAMINE. [Suspect]
     Active Substance: THIAMINE
     Indication: BICKERSTAFF^S ENCEPHALITIS
     Dosage: 200 MILLIGRAM, BID
     Route: 065
  4. METHYLPREDNISOLONE. [Suspect]
     Active Substance: METHYLPREDNISOLONE
     Indication: BICKERSTAFF^S ENCEPHALITIS
     Dosage: 30 MILLIGRAM/KILOGRAM, BID
     Route: 065
  5. HUMAN IMMUNOGLOBULIN (NC) [Suspect]
     Active Substance: HUMAN IMMUNOGLOBULIN G
     Indication: BICKERSTAFF^S ENCEPHALITIS
     Dosage: 1 UNK
     Route: 042
  6. HUMAN IMMUNOGLOBULIN (NC) [Suspect]
     Active Substance: HUMAN IMMUNOGLOBULIN G
     Dosage: 0.4 GRAM PER KILOGRAM
     Route: 042

REACTIONS (2)
  - Product use in unapproved indication [Fatal]
  - Drug ineffective for unapproved indication [Fatal]
